FAERS Safety Report 23546613 (Version 1)
Quarter: 2024Q1

REPORT INFORMATION
  Report Type: Spontaneous
  Country: US (occurrence: US)
  Receive Date: 20240221
  Receipt Date: 20240221
  Transmission Date: 20240410
  Serious: No
  Sender: FDA-Public Use
  Company Number: US-NATCOUSA-2024-NATCOUSA-000187

PATIENT
  Sex: Female

DRUGS (1)
  1. ANASTROZOLE [Suspect]
     Active Substance: ANASTROZOLE
     Indication: Product used for unknown indication
     Dates: start: 202309

REACTIONS (4)
  - Blister [Unknown]
  - Oropharyngeal discomfort [Unknown]
  - Back pain [Unknown]
  - Product substitution issue [Unknown]
